FAERS Safety Report 6191526-1 (Version None)
Quarter: 2009Q2

REPORT INFORMATION
  Report Type: 
  Country: None (occurrence: None)
  Receive Date: 20090513
  Receipt Date: 20090427
  Transmission Date: 20091009
  Serious: Yes (Death, Other)
  Sender: FDA-Public Use
  Company Number: US-GENENTECH-282761

PATIENT

DRUGS (1)
  1. MABTHERA [Suspect]
     Indication: LYMPHOMA
     Dosage: 375 MG/M2, 1/WEEK
     Route: 065

REACTIONS (7)
  - CARDIOTOXICITY [None]
  - DEATH [None]
  - HYPERSENSITIVITY [None]
  - NEUROTOXICITY [None]
  - NEUTROPENIA [None]
  - PULMONARY TOXICITY [None]
  - WEIGHT INCREASED [None]
